FAERS Safety Report 7194124-6 (Version None)
Quarter: 2010Q4

REPORT INFORMATION
  Report Type: 
  Country: None (occurrence: None)
  Receive Date: 20101223
  Receipt Date: 20101213
  Transmission Date: 20110411
  Serious: Yes (Other)
  Sender: FDA-Public Use
  Company Number: GXKR2010SI14133

PATIENT
  Sex: Female

DRUGS (3)
  1. SERTRALINE (NGX) [Suspect]
     Route: 065
  2. ISOSORBIDE MONONITRATE [Interacting]
     Route: 065
  3. LOSARTAN (NGX) [Interacting]
     Dosage: UNK
     Route: 065

REACTIONS (3)
  - DRUG INTERACTION [None]
  - FALL [None]
  - VERTIGO [None]
